FAERS Safety Report 16802734 (Version 4)
Quarter: 2020Q1

REPORT INFORMATION
  Report Type: Report from Study
  Country: IN (occurrence: IN)
  Receive Date: 20190912
  Receipt Date: 20200108
  Transmission Date: 20200409
  Serious: Yes (Hospitalization, Other)
  Sender: FDA-Public Use
  Company Number: PHHO2019IN008860

PATIENT
  Age: 56 Year
  Sex: Female
  Weight: 52 kg

DRUGS (6)
  1. XYLOMET [Concomitant]
     Indication: OTITIS MEDIA ACUTE
     Dosage: 1 DROPS TID
     Route: 045
     Dates: start: 20190822, end: 20190827
  2. AUGMENTIN [Concomitant]
     Active Substance: AMOXICILLIN\CLAVULANATE POTASSIUM
     Indication: EAR PAIN
     Dosage: 1 G, BID
     Route: 065
     Dates: start: 20190822, end: 20190827
  3. SECUKINUMAB. [Suspect]
     Active Substance: SECUKINUMAB
     Indication: HIDRADENITIS
     Dosage: 300 MG, Q4W
     Route: 058
     Dates: start: 20190723, end: 20190828
  4. BECELAC FORTE [Concomitant]
     Indication: DIARRHOEA
     Dosage: 1 TAB QD
     Route: 065
     Dates: start: 20190817, end: 20190821
  5. IBUGESIC PLUS [Concomitant]
     Active Substance: ACETAMINOPHEN\IBUPROFEN
     Indication: OTITIS MEDIA ACUTE
     Dosage: 1 TAB SOS
     Route: 065
     Dates: start: 20190822, end: 20190827
  6. ALLERCET-DC [Concomitant]
     Indication: OTITIS MEDIA ACUTE
     Dosage: 1 TAB
     Route: 065
     Dates: start: 20190822

REACTIONS (1)
  - Meningitis bacterial [Recovered/Resolved]

NARRATIVE: CASE EVENT DATE: 20190828
